FAERS Safety Report 4305218-4 (Version None)
Quarter: 2004Q1

REPORT INFORMATION
  Report Type: 
  Country: None (occurrence: None)
  Receive Date: 20040226
  Receipt Date: 20030130
  Transmission Date: 20041129
  Serious: Yes (Hospitalization, Disabling, Other)
  Sender: FDA-Public Use
  Company Number: WAES 0302USA00004

PATIENT
  Age: 54 Year
  Sex: Female
  Weight: 61 kg

DRUGS (10)
  1. VICODIN [Concomitant]
  2. PERCOCET [Concomitant]
  3. DARVOCET-N 100 [Concomitant]
  4. SOMA [Concomitant]
  5. CELEBREX [Concomitant]
     Indication: BACK PAIN
  6. IBUPROFEN [Concomitant]
  7. ALEVE [Concomitant]
     Dates: start: 19930101
  8. OXYCONTIN [Concomitant]
  9. VIOXX [Suspect]
     Indication: BACK PAIN
     Route: 048
     Dates: start: 19990101
  10. VIOXX [Suspect]
     Route: 048
     Dates: end: 20000101

REACTIONS (28)
  - ANXIETY [None]
  - BLOOD CHOLESTEROL INCREASED [None]
  - BREAST DISORDER [None]
  - CARDIAC MURMUR [None]
  - CARDIAC VALVE DISEASE [None]
  - CERVICOBRACHIAL SYNDROME [None]
  - DEPRESSION [None]
  - DIZZINESS [None]
  - DRUG HYPERSENSITIVITY [None]
  - DYSPNOEA [None]
  - ERYTHEMA [None]
  - GASTROOESOPHAGEAL REFLUX DISEASE [None]
  - HAEMATOCRIT DECREASED [None]
  - HEART RATE IRREGULAR [None]
  - HYPERTENSION [None]
  - HYPOAESTHESIA [None]
  - INJURY [None]
  - INTERVERTEBRAL DISC DISORDER [None]
  - INTERVERTEBRAL DISC PROTRUSION [None]
  - MUSCLE STRAIN [None]
  - OSTEOARTHRITIS [None]
  - OSTEOPENIA [None]
  - PARAESTHESIA [None]
  - SLEEP APNOEA SYNDROME [None]
  - SLEEP DISORDER [None]
  - SPINAL CORD COMPRESSION [None]
  - SPONDYLOSIS [None]
  - SYNCOPE VASOVAGAL [None]
